FAERS Safety Report 15053889 (Version 1)
Quarter: 2018Q2

REPORT INFORMATION
  Report Type: Spontaneous
  Country: US (occurrence: US)
  Receive Date: 20180622
  Receipt Date: 20180622
  Transmission Date: 20180711
  Serious: No
  Sender: FDA-Public Use
  Company Number: US-EAGLE PHARMACEUTICALS, INC.-US-2018EAG000042

PATIENT

DRUGS (6)
  1. BENDEKA [Suspect]
     Active Substance: BENDAMUSTINE HYDROCHLORIDE
     Dosage: 180 MG (90 MG/M2) INFUSED OVER 10 MIN (CYCLE 4, DAYS 1 AND 2)
     Route: 042
     Dates: start: 2018
  2. DEXAMETHASONE. [Concomitant]
     Active Substance: DEXAMETHASONE
     Indication: PREMEDICATION
  3. ZOFRAN [Concomitant]
     Active Substance: ONDANSETRON HYDROCHLORIDE
     Indication: PREMEDICATION
  4. BENDEKA [Suspect]
     Active Substance: BENDAMUSTINE HYDROCHLORIDE
     Dosage: 180 MG (90 MG/M2) INFUSED OVER 10 MIN (CYCLE 2, DAYS 1 AND 2)
     Route: 042
     Dates: start: 2018
  5. BENDEKA [Suspect]
     Active Substance: BENDAMUSTINE HYDROCHLORIDE
     Indication: HODGKIN^S DISEASE
     Dosage: 180 MG (90 MG/M2) INFUSED OVER 10 MIN (CYCLE 1, DAYS 1 AND 2)
     Route: 042
     Dates: start: 201802
  6. BENDEKA [Suspect]
     Active Substance: BENDAMUSTINE HYDROCHLORIDE
     Dosage: 180 MG (90 MG/M2) INFUSED OVER 10 MIN (CYCLE 3, DAYS 1 AND 2)
     Route: 042
     Dates: start: 2018

REACTIONS (1)
  - Blood pressure increased [Unknown]

NARRATIVE: CASE EVENT DATE: 201804
